FAERS Safety Report 10133386 (Version 1)
Quarter: 2014Q2

REPORT INFORMATION
  Report Type: Spontaneous
  Country: US (occurrence: US)
  Receive Date: 20140428
  Receipt Date: 20140428
  Transmission Date: 20141212
  Serious: No
  Sender: FDA-Public Use
  Company Number: US-PFIZER INC-2014113699

PATIENT
  Sex: Male

DRUGS (2)
  1. AMLODIPINE BESILATE [Suspect]
     Dosage: 5 MG, 1X/DAY
  2. LISINOPRIL [Suspect]
     Dosage: 40 MG, 2X/DAY

REACTIONS (2)
  - Intentional product misuse [Unknown]
  - Blood pressure inadequately controlled [Unknown]
